FAERS Safety Report 25502322 (Version 1)
Quarter: 2025Q3

REPORT INFORMATION
  Report Type: Spontaneous
  Country: JP (occurrence: JP)
  Receive Date: 20250702
  Receipt Date: 20250702
  Transmission Date: 20251021
  Serious: Yes (Other)
  Sender: GENMAB
  Company Number: JP-GENMAB-2025-00854

PATIENT
  Age: 69 Year
  Sex: Male
  Weight: 71.6 kg

DRUGS (9)
  1. EPKINLY [Suspect]
     Active Substance: EPCORITAMAB-BYSP
     Indication: Follicular lymphoma refractory
     Route: 058
     Dates: start: 20250305, end: 202503
  2. EPKINLY [Suspect]
     Active Substance: EPCORITAMAB-BYSP
     Route: 058
     Dates: start: 20250319
  3. DECADRAN [DEXAMETHASONE] [Concomitant]
     Indication: Prophylaxis
     Dates: start: 20250305, end: 202503
  4. POLARAMINE [Concomitant]
     Active Substance: DEXCHLORPHENIRAMINE MALEATE
     Indication: Prophylaxis
     Dates: start: 202504, end: 202504
  5. SOLU-MEDROL [Concomitant]
     Active Substance: METHYLPREDNISOLONE SODIUM SUCCINATE
     Indication: Prophylaxis
     Dates: start: 202504, end: 202504
  6. MONTELUKAST SODIUM [Concomitant]
     Active Substance: MONTELUKAST SODIUM
     Indication: Prophylaxis
     Dates: start: 20250305, end: 202504
  7. ACETAMINOPHEN [Concomitant]
     Active Substance: ACETAMINOPHEN
     Indication: Prophylaxis
     Dates: start: 20250305, end: 202504
  8. SOLITA T NO.3 [Concomitant]
     Indication: Prophylaxis
     Dates: start: 20250305, end: 20250409
  9. MEYLON [Concomitant]
     Active Substance: SODIUM BICARBONATE
     Indication: Prophylaxis
     Dates: start: 20250305, end: 20250409

REACTIONS (3)
  - Follicular lymphoma refractory [Unknown]
  - Cytokine release syndrome [Recovered/Resolved]
  - Tumour associated fever [Unknown]

NARRATIVE: CASE EVENT DATE: 20250101
